FAERS Safety Report 25076845 (Version 1)
Quarter: 2025Q1

REPORT INFORMATION
  Report Type: Spontaneous
  Country: CN (occurrence: CN)
  Receive Date: 20250313
  Receipt Date: 20250313
  Transmission Date: 20250408
  Serious: Yes (Hospitalization, Other)
  Sender: MALLINCKRODT
  Company Number: CN-MALLINCKRODT-MNK202501443

PATIENT
  Age: 2 Year
  Sex: Male

DRUGS (2)
  1. NITRIC OXIDE [Suspect]
     Active Substance: NITRIC OXIDE
     Indication: Post procedural hypotension
     Route: 055
  2. NITRIC OXIDE [Suspect]
     Active Substance: NITRIC OXIDE
     Indication: Hypoxia
     Route: 055

REACTIONS (7)
  - Pulmonary hypertension [Recovered/Resolved]
  - Disease recurrence [Recovered/Resolved]
  - Pneumonia [Recovered/Resolved]
  - Hypoxia [Recovered/Resolved]
  - Condition aggravated [Recovered/Resolved]
  - Methaemoglobinaemia [Recovered/Resolved]
  - Product use issue [Unknown]
